FAERS Safety Report 15000894 (Version 3)
Quarter: 2018Q2

REPORT INFORMATION
  Report Type: Report from Study
  Country: FR (occurrence: FR)
  Receive Date: 20180612
  Receipt Date: 20180614
  Transmission Date: 20180711
  Serious: Yes (Hospitalization)
  Sender: FDA-Public Use
  Company Number: FR-TEVA-2018-FR-889431

PATIENT
  Age: 60 Year
  Weight: 67 kg

DRUGS (8)
  1. CISPLATIN. [Suspect]
     Active Substance: CISPLATIN
     Indication: SQUAMOUS CELL CARCINOMA OF HEAD AND NECK
     Dosage: REGIMEN DAYS 1, 22, AND 43 OF CRT PHASE
     Route: 041
     Dates: start: 20180403, end: 20180403
  2. MSB0010718C; PLACEBO [Suspect]
     Active Substance: AVELUMAB
     Indication: SQUAMOUS CELL CARCINOMA OF HEAD AND NECK
     Dosage: DAY 1 OF LEAD-IN-PHASE, DAYS 8, 25, AND 39 OF CRT PHASE, EVERY 2 WEEKS
     Route: 041
     Dates: start: 20180327, end: 20180327
  3. ONDANSETRON [Concomitant]
     Active Substance: ONDANSETRON
     Route: 065
     Dates: start: 20180304, end: 20180404
  4. METOCLOPRAMIDE. [Concomitant]
     Active Substance: METOCLOPRAMIDE
     Route: 065
     Dates: start: 20180403
  5. METHYLPREDNISOLONE. [Concomitant]
     Active Substance: METHYLPREDNISOLONE
     Route: 065
     Dates: start: 20180404, end: 20180404
  6. APREPITANT. [Concomitant]
     Active Substance: APREPITANT
     Route: 065
     Dates: start: 20180405, end: 20180406
  7. HYDROXYZINE [Concomitant]
     Active Substance: HYDROXYZINE HYDROCHLORIDE
     Route: 065
     Dates: start: 20180403, end: 20180405
  8. APREPITANT. [Concomitant]
     Active Substance: APREPITANT
     Route: 065
     Dates: start: 20180404, end: 20180404

REACTIONS (1)
  - Sepsis [Recovered/Resolved]

NARRATIVE: CASE EVENT DATE: 20180406
